FAERS Safety Report 9532220 (Version 5)
Quarter: 2016Q1

REPORT INFORMATION
  Report Type: Report from Study
  Country: FR (occurrence: FR)
  Receive Date: 20130918
  Receipt Date: 20160310
  Transmission Date: 20160526
  Serious: Yes (Hospitalization, Other)
  Sender: FDA-Public Use
  Company Number: FR-UCBSA-097632

PATIENT
  Age: 52 Year
  Sex: Female
  Weight: 54 kg

DRUGS (13)
  1. CORTANCYL [Concomitant]
     Active Substance: PREDNISONE
     Dosage: UNK
     Route: 048
     Dates: start: 2013, end: 2013
  2. CORTANCYL [Concomitant]
     Active Substance: PREDNISONE
     Dosage: DAILY DOSE: 20 MG
     Dates: start: 20130907, end: 201309
  3. METHOTREXATE [Concomitant]
     Active Substance: METHOTREXATE
     Indication: RHEUMATOID ARTHRITIS
     Dosage: 15 MG, WEEKLY (QW)
     Route: 058
     Dates: start: 201204, end: 20130804
  4. CORTANCYL [Concomitant]
     Active Substance: PREDNISONE
     Dosage: DAILY DOSE: 15 MG
     Dates: start: 20130914
  5. SPECIAFOLDINE [Concomitant]
     Active Substance: FOLIC ACID
     Indication: PROPHYLAXIS
     Dosage: 10 MG, WEEKLY (QW)
     Route: 048
     Dates: start: 201204
  6. PARACETAMOL [Concomitant]
     Active Substance: ACETAMINOPHEN
     Indication: RHEUMATOID ARTHRITIS
     Dosage: DOSE: 1 G
     Route: 048
     Dates: start: 201204
  7. LEXOMIL [Concomitant]
     Active Substance: BROMAZEPAM
     Indication: ANXIETY
     Dosage: 1.5 MG, 2X/DAY (BID)
     Route: 048
     Dates: start: 20130315
  8. CERTOLIZUMAB PEGOL RA [Suspect]
     Active Substance: CERTOLIZUMAB PEGOL
     Indication: RHEUMATOID ARTHRITIS
     Dosage: 400 MG, EV 2 WEEKS(QOW)
     Route: 058
     Dates: start: 20130614, end: 20130711
  9. CORTANCYL [Concomitant]
     Active Substance: PREDNISONE
     Dosage: 15 MG, ONCE DAILY (QD)
     Route: 048
     Dates: start: 20130831, end: 2013
  10. CORTANCYL [Concomitant]
     Active Substance: PREDNISONE
     Dosage: 9 MG, UNK
     Dates: start: 20130608, end: 20130707
  11. CORTANCYL [Concomitant]
     Active Substance: PREDNISONE
     Dosage: 8 MG, UNK
     Dates: start: 20130708, end: 20130807
  12. ALTIM [Concomitant]
     Active Substance: CORTIVAZOL
     Indication: RHEUMATOID ARTHRITIS
     Dosage: 3.75 MG, UNK
     Dates: start: 20130221
  13. CORTANCYL [Concomitant]
     Active Substance: PREDNISONE
     Indication: RHEUMATOID ARTHRITIS
     Dosage: 10 MG, ONCE DAILY (QD)
     Route: 048
     Dates: start: 20130221, end: 2013

REACTIONS (1)
  - Borderline mucinous tumour of ovary [Recovered/Resolved]

NARRATIVE: CASE EVENT DATE: 20130724
